FAERS Safety Report 4302067-8 (Version None)
Quarter: 2004Q1

REPORT INFORMATION
  Report Type: 
  Country: None (occurrence: None)
  Receive Date: 20040220
  Receipt Date: 20040209
  Transmission Date: 20041129
  Serious: Yes (Hospitalization, Disabling)
  Sender: FDA-Public Use
  Company Number: 04P-151-0250096-00

PATIENT
  Age: 86 Year
  Sex: Male

DRUGS (6)
  1. HYTRIN [Suspect]
     Indication: BENIGN PROSTATIC HYPERPLASIA
     Dosage: SEE IMAGE
     Route: 048
     Dates: start: 20040115, end: 20040117
  2. HYTRIN [Suspect]
     Indication: BENIGN PROSTATIC HYPERPLASIA
     Dosage: SEE IMAGE
     Route: 048
     Dates: start: 20040117, end: 20040121
  3. HYTRIN [Suspect]
     Indication: BENIGN PROSTATIC HYPERPLASIA
     Dosage: SEE IMAGE
     Route: 048
     Dates: start: 20040121, end: 20040121
  4. RAMIPRIL [Concomitant]
  5. HEPARIN-FRACTION, SODIUM SALT [Concomitant]
  6. CLAVULIN [Concomitant]

REACTIONS (5)
  - BRADYCARDIA [None]
  - CIRCULATORY COLLAPSE [None]
  - HYPOTENSION [None]
  - SOMNOLENCE [None]
  - SYNCOPE [None]
